FAERS Safety Report 12138856 (Version 4)
Quarter: 2016Q2

REPORT INFORMATION
  Report Type: Report from Study
  Country: US (occurrence: US)
  Receive Date: 20160302
  Receipt Date: 20160613
  Transmission Date: 20160815
  Serious: Yes (Hospitalization)
  Sender: FDA-Public Use
  Company Number: US-ACTELION-A-US2016-131032

PATIENT
  Age: 58 Year
  Sex: Female

DRUGS (2)
  1. LETAIRIS [Suspect]
     Active Substance: AMBRISENTAN
     Indication: PRODUCT USED FOR UNKNOWN INDICATION
     Route: 065
  2. VELETRI [Suspect]
     Active Substance: EPOPROSTENOL
     Indication: PULMONARY ARTERIAL HYPERTENSION
     Dosage: 28 NG/KG, PER MIN
     Route: 042
     Dates: start: 20100611

REACTIONS (17)
  - Nausea [Unknown]
  - Decreased appetite [Unknown]
  - Presyncope [Unknown]
  - Fall [Unknown]
  - Localised infection [Unknown]
  - Asthenia [Unknown]
  - Fluid retention [Unknown]
  - Limb injury [Unknown]
  - Central venous catheterisation [Unknown]
  - Cholelithiasis [Unknown]
  - Dyspnoea [Unknown]
  - Weight decreased [Unknown]
  - Device related infection [Unknown]
  - Chest pain [Unknown]
  - Oxygen saturation decreased [Unknown]
  - Diarrhoea [Unknown]
  - Vomiting [Unknown]
